FAERS Safety Report 5879693-8 (Version None)
Quarter: 2008Q3

REPORT INFORMATION
  Report Type: 
  Country: None (occurrence: None)
  Receive Date: 20080912
  Receipt Date: 20080901
  Transmission Date: 20090109
  Serious: Yes (Other)
  Sender: FDA-Public Use
  Company Number: JP-MERCK-0805USA05162

PATIENT
  Age: 62 Year
  Sex: Female

DRUGS (12)
  1. FOSAMAX [Suspect]
     Indication: OSTEOPOROSIS
     Route: 048
     Dates: start: 20070925, end: 20080410
  2. LANSOPRAZOLE [Concomitant]
     Indication: OSTEOPOROSIS
     Route: 065
  3. PREDNISOLONE [Concomitant]
     Route: 065
  4. ONEALFA [Concomitant]
     Route: 048
  5. NEORAL [Concomitant]
     Route: 048
  6. DEPAS [Concomitant]
     Route: 048
  7. COTRIM [Concomitant]
     Route: 048
  8. BLOPRESS [Concomitant]
     Route: 048
  9. MEILAX [Concomitant]
     Route: 048
  10. ALINAMIN F (FURSULTIAMINE HYDROCHLORIDE (+) RIBOFLAVIN) [Concomitant]
     Route: 065
  11. AMLODIPINE BESYLATE [Concomitant]
     Route: 048
  12. HYPEN [Concomitant]
     Route: 048

REACTIONS (2)
  - GINGIVAL SWELLING [None]
  - ORAL TORUS [None]
